FAERS Safety Report 8027721-6 (Version None)
Quarter: 2012Q1

REPORT INFORMATION
  Report Type: 
  Country: None (occurrence: None)
  Receive Date: 20120106
  Receipt Date: 20111228
  Transmission Date: 20120608
  Serious: Yes (Hospitalization)
  Sender: FDA-Public Use
  Company Number: US-ASTRAZENECA-2011SE78577

PATIENT
  Age: 27609 Day
  Sex: Male
  Weight: 75.7 kg

DRUGS (28)
  1. ATACAND [Suspect]
     Dosage: 32/25 MG DAILY
     Route: 048
     Dates: start: 20090901, end: 20091206
  2. BISCODYL SUPPOSITORY [Concomitant]
     Route: 065
  3. ATACAND [Suspect]
     Route: 048
     Dates: start: 20110101
  4. CLONIDINE [Concomitant]
     Route: 065
  5. OXYCODONE HCL [Concomitant]
     Route: 065
     Dates: start: 20110601
  6. SENNA [Concomitant]
     Route: 065
     Dates: start: 20110601
  7. COLCHICINE [Concomitant]
     Route: 065
     Dates: start: 20111018
  8. GABAPENTIN [Concomitant]
     Route: 065
     Dates: start: 20090616
  9. FLOMAX [Concomitant]
     Route: 065
     Dates: start: 20110601
  10. ATACAND [Suspect]
     Indication: HYPERTENSION
     Dosage: 32/12.5 MG DAILY
     Route: 048
     Dates: start: 20081122, end: 20090901
  11. CADUET [Suspect]
     Route: 048
     Dates: start: 20111128, end: 20111221
  12. OMEPRAZOLE [Concomitant]
     Route: 065
     Dates: start: 20070101
  13. ACETAMINOPHEN [Concomitant]
     Route: 065
  14. COUMADIN [Concomitant]
     Route: 065
     Dates: start: 20110601
  15. CADUET [Suspect]
     Route: 048
     Dates: start: 20111128, end: 20111221
  16. CADUET [Suspect]
     Route: 048
     Dates: start: 20111128, end: 20111221
  17. LEVOTHYROXINE SODIUM [Concomitant]
     Route: 065
     Dates: start: 20070101
  18. MIDODRINE HYDROCHLORIDE [Concomitant]
     Route: 065
     Dates: start: 20110601
  19. GABAPENTIN [Concomitant]
     Route: 065
     Dates: start: 20111018
  20. LIPITOR [Concomitant]
     Route: 065
     Dates: start: 20110427
  21. PRILOSEC [Concomitant]
     Route: 065
     Dates: start: 20111018
  22. VALIUM [Concomitant]
     Route: 065
     Dates: start: 20040101
  23. HYDROCODONE BITARTRATE [Concomitant]
     Route: 065
     Dates: start: 19670101
  24. SPIRIVA [Concomitant]
     Route: 065
     Dates: start: 20101019
  25. ATACAND [Suspect]
     Route: 048
     Dates: start: 20110427
  26. CADUET [Suspect]
     Indication: HYPERTENSION
     Route: 048
     Dates: start: 20081120, end: 20110329
  27. CADUET [Suspect]
     Indication: HYPERLIPIDAEMIA
     Route: 048
     Dates: start: 20081120, end: 20110329
  28. CADUET [Suspect]
     Route: 048
     Dates: start: 20111128, end: 20111221

REACTIONS (1)
  - LOSS OF CONSCIOUSNESS [None]
